FAERS Safety Report 9415775 (Version 3)
Quarter: 2013Q3

REPORT INFORMATION
  Report Type: Spontaneous
  Country: US (occurrence: US)
  Receive Date: 20130724
  Receipt Date: 20130823
  Transmission Date: 20140515
  Serious: Yes (Death, Hospitalization)
  Sender: FDA-Public Use
  Company Number: US-AMGEN-USASP2013050773

PATIENT
  Age: 82 Year
  Sex: Female

DRUGS (15)
  1. PROLIA [Suspect]
     Indication: OSTEOPOROSIS
     Dosage: 60 MG/ML, UNK
     Route: 058
  2. ACETAMINOPHEN AND CODEINE [Concomitant]
  3. ADVAIR [Concomitant]
  4. ALBUTEROL                          /00139501/ [Concomitant]
     Indication: DYSPNOEA
  5. ALBUTEROL                          /00139501/ [Concomitant]
     Indication: WHEEZING
  6. ALBUTEROL                          /00139501/ [Concomitant]
     Indication: COUGH
  7. ZYLOPRIM [Concomitant]
     Dosage: 300 MG, UNK
  8. NORVASC [Concomitant]
     Dosage: 5 MG, UNK
  9. VITAMIN B12                        /00056201/ [Concomitant]
     Dosage: 250 MUG, BID
     Route: 048
  10. ENABLEX                            /01760401/ [Concomitant]
     Dosage: 7.5 MG, UNK
  11. MULTIVITAMINS [Concomitant]
     Dosage: 60 MG, UNK
  12. PRAMIPEXOLE [Concomitant]
     Dosage: 0.125 MG, UNK
  13. SENNA                              /00142201/ [Concomitant]
     Dosage: 1.76 MG/ML, UNK
  14. SOTALOL [Concomitant]
     Dosage: 80 MG, UNK
  15. SPIRIVA HANDIHALER [Concomitant]

REACTIONS (11)
  - Death [Fatal]
  - Hand fracture [Unknown]
  - Contusion [Unknown]
  - Fall [Unknown]
  - Hyponatraemia [Unknown]
  - Chronic obstructive pulmonary disease [Unknown]
  - Pyuria [Unknown]
  - Malnutrition [Unknown]
  - Asthenia [Unknown]
  - Constipation [Unknown]
  - White blood cells urine [Unknown]
